FAERS Safety Report 19467691 (Version 1)
Quarter: 2021Q2

REPORT INFORMATION
  Report Type: Spontaneous
  Country: US (occurrence: US)
  Receive Date: 20210628
  Receipt Date: 20210628
  Transmission Date: 20210717
  Serious: No
  Sender: FDA-Public Use
  Company Number: None

PATIENT
  Age: 72 Year
  Sex: Male

DRUGS (7)
  1. FAMOTIDINE 40MG TABLETS [Concomitant]
  2. FLUTICASONE NASAL SPRAY [Concomitant]
     Active Substance: FLUTICASONE
  3. CLOBETASOL PROP 0.05% OINTMENT [Concomitant]
  4. OTEZLA [Suspect]
     Active Substance: APREMILAST
     Indication: PSORIASIS
     Route: 048
     Dates: start: 20210226
  5. CETIRIZINE [Concomitant]
     Active Substance: CETIRIZINE HYDROCHLORIDE
  6. GLUCOSAMINE CHONDROITIN TABLETS [Concomitant]
  7. CLOBETASOL PROP 0.05% SOLUTION [Concomitant]

REACTIONS (3)
  - Asthenia [None]
  - Depressed mood [None]
  - Drug ineffective [None]

NARRATIVE: CASE EVENT DATE: 20210401
